FAERS Safety Report 19690444 (Version 1)
Quarter: 2021Q3

REPORT INFORMATION
  Report Type: Spontaneous
  Country: US (occurrence: US)
  Receive Date: 20210811
  Receipt Date: 20210811
  Transmission Date: 20211014
  Serious: Yes (Hospitalization)
  Sender: FDA-Public Use
  Company Number: None

PATIENT
  Sex: Male

DRUGS (1)
  1. TOBRAMYCIN (56AMPS/28DAY) [Suspect]
     Active Substance: TOBRAMYCIN
     Indication: BRONCHIECTASIS
     Dates: start: 201906

REACTIONS (6)
  - Condition aggravated [None]
  - Atrial fibrillation [None]
  - Dyspnoea [None]
  - Tachycardia [None]
  - Bronchiectasis [None]
  - Hypotension [None]
